FAERS Safety Report 19901675 (Version 4)
Quarter: 2021Q4

REPORT INFORMATION
  Report Type: Report from Study
  Country: US (occurrence: US)
  Receive Date: 20210930
  Receipt Date: 20211206
  Transmission Date: 20220303
  Serious: Yes (Hospitalization)
  Sender: FDA-Public Use
  Company Number: US-PFIZER INC-202101259750

PATIENT
  Age: 73 Year
  Sex: Female

DRUGS (5)
  1. IRINOTECAN HYDROCHLORIDE [Suspect]
     Active Substance: IRINOTECAN HYDROCHLORIDE
     Indication: Colon cancer
     Dosage: 86 MG, EVERY TWO WEEKS (1 IN 2 WK), COMPLETED 3 CYCLES
     Route: 042
     Dates: start: 20210714, end: 20210825
  2. TIPIRACIL HYDROCHLORIDE\TRIFLURIDINE [Suspect]
     Active Substance: TIPIRACIL HYDROCHLORIDE\TRIFLURIDINE
     Indication: Colon cancer
     Dosage: 40 MG (30MG/M2 X 5 DAYS), 1 IN 0.5D COMPLETED 3 CYCLES
     Route: 048
     Dates: start: 20210714
  3. NEUPOGEN [Concomitant]
     Active Substance: FILGRASTIM
     Indication: Neutropenia
     Dosage: 300 MG, 1X/DAY(STARTING ON DAY 9 OF TREATMENT CYCLE FOR 5 DAYS)
     Dates: start: 20210819
  4. AVASTIN [Concomitant]
     Active Substance: BEVACIZUMAB
     Dosage: UNK
     Dates: start: 20210714
  5. AVASTIN [Concomitant]
     Active Substance: BEVACIZUMAB
     Dosage: UNK
     Dates: start: 20210811

REACTIONS (3)
  - Abdominal pain [Recovered/Resolved]
  - Acute kidney injury [Recovered/Resolved]
  - Clostridium difficile colitis [Unknown]

NARRATIVE: CASE EVENT DATE: 20210908
